FAERS Safety Report 23366803 (Version 2)
Quarter: 2024Q1

REPORT INFORMATION
  Report Type: Spontaneous
  Country: FR (occurrence: FR)
  Receive Date: 20240104
  Receipt Date: 20240109
  Transmission Date: 20240409
  Serious: Yes (Hospitalization)
  Sender: FDA-Public Use
  Company Number: None

PATIENT
  Age: 57 Year
  Sex: Male
  Weight: 106 kg

DRUGS (5)
  1. PIPERACILLIN SODIUM\TAZOBACTAM SODIUM [Suspect]
     Active Substance: PIPERACILLIN SODIUM\TAZOBACTAM SODIUM
     Indication: Abdominal wall abscess
     Dosage: 12 GRAM, QD
     Route: 042
     Dates: start: 20231106, end: 20231110
  2. LINEZOLID [Suspect]
     Active Substance: LINEZOLID
     Indication: Abdominal wall abscess
     Dosage: 1200 MG, 1X/DAY
     Route: 048
     Dates: start: 20231107, end: 20231113
  3. PANTOPRAZOLE [Suspect]
     Active Substance: PANTOPRAZOLE
     Indication: Prophylaxis
     Dosage: 80 MG, 1X/DAY
     Route: 042
     Dates: start: 20231107, end: 20231108
  4. PANTOPRAZOLE [Suspect]
     Active Substance: PANTOPRAZOLE
     Indication: Prophylaxis
     Dosage: 80 MG, 1X/DAY
     Route: 048
     Dates: start: 20231108, end: 20231110
  5. PHLOROGLUCINOL [Suspect]
     Active Substance: PHLOROGLUCINOL
     Indication: Abdominal pain
     Dosage: 80 MG, 1X/DAY
     Route: 042
     Dates: start: 20231106, end: 20231110

REACTIONS (2)
  - Vascular purpura [Recovering/Resolving]
  - Off label use [Unknown]

NARRATIVE: CASE EVENT DATE: 20231106
